FAERS Safety Report 22286256 (Version 10)
Quarter: 2024Q2

REPORT INFORMATION
  Report Type: Spontaneous
  Country: CA (occurrence: CA)
  Receive Date: 20230505
  Receipt Date: 20240405
  Transmission Date: 20240716
  Serious: Yes (Other)
  Sender: FDA-Public Use
  Company Number: CA-CELLTRION INC.-2022CA016558

PATIENT

DRUGS (16)
  1. INFLECTRA [Suspect]
     Active Substance: INFLIXIMAB-DYYB
     Indication: Crohn^s disease
     Dosage: 5 MG/KG (WEEK 0, 2, 6 THEN EVERY 8 WEEKS)
     Route: 042
     Dates: start: 20220829
  2. INFLECTRA [Suspect]
     Active Substance: INFLIXIMAB-DYYB
     Dosage: 5 MG/KG (WEEK 0, 2, 6 THEN EVERY 8 WEEKS)
     Route: 042
     Dates: start: 20220911
  3. INFLECTRA [Suspect]
     Active Substance: INFLIXIMAB-DYYB
     Dosage: 5 MG/KG (WEEK 0, 2, 6 THEN EVERY 8 WEEKS)
     Route: 042
     Dates: start: 20220922
  4. INFLECTRA [Suspect]
     Active Substance: INFLIXIMAB-DYYB
     Dosage: 5 MG/KG (WEEK 0, 2, 6 THEN EVERY 8 WEEKS)
     Route: 042
     Dates: start: 20220922
  5. INFLECTRA [Suspect]
     Active Substance: INFLIXIMAB-DYYB
     Dosage: 5 MG/KG (WEEK 0, 2, 6 THEN EVERY 8 WEEKS)
     Route: 042
     Dates: start: 20221117
  6. INFLECTRA [Suspect]
     Active Substance: INFLIXIMAB-DYYB
     Dosage: 5 MG/KG (WEEK 0, 2, 6 THEN EVERY 8 WEEKS)
     Route: 042
     Dates: start: 20230308
  7. INFLECTRA [Suspect]
     Active Substance: INFLIXIMAB-DYYB
     Dosage: 5 MG/KG (370 MG), AFTER 6 WEEKS 6 DAYS (SUPPOSED TO RECEIVE 375MG AT Q6 WEEKS)
     Route: 042
     Dates: start: 20230425
  8. INFLECTRA [Suspect]
     Active Substance: INFLIXIMAB-DYYB
     Dosage: 400 MG, AFTER 10 WEEKS 2 DAYS
     Route: 042
     Dates: start: 20230706
  9. INFLECTRA [Suspect]
     Active Substance: INFLIXIMAB-DYYB
     Dosage: 400 MG, AFTER 10 WEEKS 2 DAYS
     Route: 042
     Dates: start: 20230706
  10. INFLECTRA [Suspect]
     Active Substance: INFLIXIMAB-DYYB
     Dosage: 5 MG/KG (435 MG), AFTER 3 WEEKS AND 5 DAYS (PRESCRIBED EVERY 6 WEEKS)
     Route: 042
     Dates: start: 20230801
  11. INFLECTRA [Suspect]
     Active Substance: INFLIXIMAB-DYYB
     Dosage: 5 MG/KG (405 MG), AFTER 12 WEEKS AND 3 DAYS (PRESCRIBED EVERY 6 WEEKS)
     Route: 042
     Dates: start: 20231027
  12. INFLECTRA [Suspect]
     Active Substance: INFLIXIMAB-DYYB
     Dosage: 5 MG/KG (420 MG), AFTER 12 WEEKS AND 4 DAYS
     Route: 042
     Dates: start: 20240123
  13. INFLECTRA [Suspect]
     Active Substance: INFLIXIMAB-DYYB
     Dosage: 5MG/KG (405MG), AFTER 9 WEEKS AND 2 DAYS (PRESCRIBED EVERY 6 WEEKS)
     Route: 042
     Dates: start: 20240328
  14. DEXILANT [Concomitant]
     Active Substance: DEXLANSOPRAZOLE
     Dosage: 60 MG, 1X/DAY
     Route: 048
  15. METHOTREXATE [Concomitant]
     Active Substance: METHOTREXATE
     Indication: Crohn^s disease
     Dosage: 25 MG, WEEKLY
     Route: 058
  16. PREDNISONE [Concomitant]
     Active Substance: PREDNISONE
     Dosage: 15 MG, 1X/DAY
     Route: 048
     Dates: start: 20220526

REACTIONS (15)
  - Maternal exposure timing unspecified [Unknown]
  - Rectal haemorrhage [Not Recovered/Not Resolved]
  - Uveitis [Recovered/Resolved]
  - Sinusitis bacterial [Unknown]
  - Condition aggravated [Not Recovered/Not Resolved]
  - Illness [Recovered/Resolved]
  - Mouth ulceration [Recovered/Resolved]
  - Anal fissure [Recovered/Resolved]
  - Vomiting [Unknown]
  - Post procedural discomfort [Unknown]
  - Arthralgia [Recovered/Resolved]
  - Infection [Unknown]
  - Nausea [Unknown]
  - Off label use [Unknown]
  - Inappropriate schedule of product administration [Unknown]

NARRATIVE: CASE EVENT DATE: 20220101
